FAERS Safety Report 15508503 (Version 1)
Quarter: 2018Q4

REPORT INFORMATION
  Report Type: Spontaneous
  Country: US (occurrence: US)
  Receive Date: 20181016
  Receipt Date: 20181016
  Transmission Date: 20190205
  Serious: No
  Sender: FDA-Public Use
  Company Number: US-ENDO PHARMACEUTICALS INC-2018-041407

PATIENT
  Age: 72 Year
  Sex: Male
  Weight: 97.51 kg

DRUGS (1)
  1. VANTAS [Suspect]
     Active Substance: HISTRELIN ACETATE
     Indication: PROSTATE CANCER
     Dosage: 50 MG, UNKNOWN
     Route: 058
     Dates: start: 20180823

REACTIONS (2)
  - Implant site inflammation [Unknown]
  - Expulsion of medication [Recovered/Resolved]

NARRATIVE: CASE EVENT DATE: 201809
